FAERS Safety Report 12179014 (Version 3)
Quarter: 2016Q2

REPORT INFORMATION
  Report Type: Report from Study
  Country: DE (occurrence: DE)
  Receive Date: 20160315
  Receipt Date: 20160426
  Transmission Date: 20160815
  Serious: Yes (Other)
  Sender: FDA-Public Use
  Company Number: PHHY2016DE030625

PATIENT
  Sex: Female
  Weight: 56 kg

DRUGS (5)
  1. AFINITOR [Suspect]
     Active Substance: EVEROLIMUS
     Dosage: 5 MG, QD (ONCE DAILY)
     Route: 048
     Dates: start: 20150715, end: 20160303
  2. AFINITOR [Suspect]
     Active Substance: EVEROLIMUS
     Indication: BREAST CANCER METASTATIC
     Dosage: 10 MG, QD (DAILY)
     Route: 048
     Dates: start: 20150116, end: 20150324
  3. AFINITOR [Suspect]
     Active Substance: EVEROLIMUS
     Dosage: 5 MG, QD (ONCE DAILY)
     Route: 048
     Dates: start: 20150413, end: 20150610
  4. AFINITOR [Suspect]
     Active Substance: EVEROLIMUS
     Dosage: 10 MG, QD (ONCE DAILY)
     Route: 048
     Dates: start: 20150616, end: 20150714
  5. EXEMESTANE. [Concomitant]
     Active Substance: EXEMESTANE
     Indication: BREAST CANCER METASTATIC
     Dosage: 25 MG, QD (DAILY)
     Route: 048
     Dates: start: 20150116, end: 20160330

REACTIONS (3)
  - Liver function test abnormal [Not Recovered/Not Resolved]
  - Gamma-glutamyltransferase increased [Unknown]
  - Alanine aminotransferase increased [Unknown]

NARRATIVE: CASE EVENT DATE: 20160225
